FAERS Safety Report 4719052-4 (Version None)
Quarter: 2005Q3

REPORT INFORMATION
  Report Type: 
  Country: None (occurrence: None)
  Receive Date: 20050719
  Receipt Date: 20050704
  Transmission Date: 20060218
  Serious: Yes (Hospitalization, Other)
  Sender: FDA-Public Use
  Company Number: 2005081299

PATIENT
  Age: 70 Year
  Sex: Male
  Weight: 65 kg

DRUGS (4)
  1. VIAGRA [Suspect]
     Indication: ILL-DEFINED DISORDER
     Dosage: (AS NECESSARY),  ORAL
     Route: 048
     Dates: end: 20030721
  2. COLCHICINE (COLCHICINE) [Concomitant]
  3. VALSARTAN [Concomitant]
  4. LYSINE (LYSINE) [Concomitant]

REACTIONS (2)
  - AMAUROSIS FUGAX [None]
  - OPTIC ISCHAEMIC NEUROPATHY [None]
